FAERS Safety Report 10597556 (Version 1)
Quarter: 2014Q4

REPORT INFORMATION
  Report Type: Spontaneous
  Country: US (occurrence: None)
  Receive Date: 20141120
  Receipt Date: 20141120
  Transmission Date: 20150529
  Serious: Yes (Other)
  Sender: FDA-Public Use
  Company Number: None

PATIENT
  Sex: Male
  Weight: 42.18 kg

DRUGS (1)
  1. DEXMETHYLPHENIDATE HYDROCHLORIDE 15MG + 30MG ?-FAMILY NO LONGER HAS RX (BOTTLE) [Suspect]
     Active Substance: DEXMETHYLPHENIDATE HYDROCHLORIDE

REACTIONS (1)
  - Irritability [None]

NARRATIVE: CASE EVENT DATE: 2013
